FAERS Safety Report 6037433-6 (Version None)
Quarter: 2009Q1

REPORT INFORMATION
  Report Type: 
  Country: None (occurrence: None)
  Receive Date: 20090114
  Receipt Date: 20090112
  Transmission Date: 20090719
  Serious: Yes (Death)
  Sender: FDA-Public Use
  Company Number: US-BRISTOL-MYERS SQUIBB COMPANY-14466551

PATIENT
  Age: 62 Year
  Sex: Male

DRUGS (5)
  1. CYTOXAN [Suspect]
     Indication: ACUTE MYELOID LEUKAEMIA
     Dosage: FORMULATION: VIAL
     Route: 065
  2. VELCADE [Suspect]
     Indication: ACUTE MYELOID LEUKAEMIA
     Dosage: FORMULATION: INJ
     Route: 065
  3. FLUDARABINE PHOSPHATE [Suspect]
     Indication: ACUTE MYELOID LEUKAEMIA
     Dosage: FORMULATION: INJ
     Route: 065
  4. PROLEUKIN [Suspect]
     Indication: ACUTE MYELOID LEUKAEMIA
     Dosage: FORMULATION: POWDER
     Route: 065
  5. THYMOGLOBULIN [Suspect]
     Indication: ACUTE MYELOID LEUKAEMIA
     Dosage: FORMULATION: POWDER
     Route: 065

REACTIONS (2)
  - ENTEROCOCCAL SEPSIS [None]
  - VENOOCCLUSIVE LIVER DISEASE [None]
